FAERS Safety Report 17052157 (Version 1)
Quarter: 2019Q4

REPORT INFORMATION
  Report Type: Spontaneous
  Country: US (occurrence: US)
  Receive Date: 20191022
  Receipt Date: 20191022
  Transmission Date: 20200122
  Serious: No
  Sender: FDA-Public Use
  Company Number: None

PATIENT
  Age: 52 Year
  Sex: Female

DRUGS (1)
  1. BOTOX [Suspect]
     Active Substance: ONABOTULINUMTOXINA
     Indication: MIGRAINE
     Dosage: ?          OTHER STRENGTH:200 UNIT;OTHER DOSE:155 UNITS;?
     Route: 030
     Dates: start: 201907

REACTIONS (5)
  - Dizziness [None]
  - Eating disorder [None]
  - Nausea [None]
  - Pupil fixed [None]
  - Asthenia [None]

NARRATIVE: CASE EVENT DATE: 20191022
